FAERS Safety Report 8104411 (Version 14)
Quarter: 2021Q3

REPORT INFORMATION
  Report Type: Spontaneous
  Country: GB (occurrence: GB)
  Receive Date: 20110824
  Receipt Date: 20210730
  Transmission Date: 20211014
  Serious: Yes (Life-Threatening, Hospitalization, Disabling, Other)
  Sender: FDA-Public Use
  Company Number: GB-GLAXOSMITHKLINE-B0740896A

PATIENT
  Age: 30 Year
  Sex: Female
  Weight: 63.5 kg

DRUGS (28)
  1. AMITRIPTYLINE [Interacting]
     Active Substance: AMITRIPTYLINE
     Indication: SEROTONIN SYNDROME
  2. LORAZEPAM. [Interacting]
     Active Substance: LORAZEPAM
     Dosage: 4 MG, QD
     Route: 048
     Dates: start: 20110224, end: 20110410
  3. DIAZEPAM. [Interacting]
     Active Substance: DIAZEPAM
     Indication: SEROTONIN SYNDROME
     Dosage: 8 MG, QD
     Route: 065
  4. DIAZEPAM. [Interacting]
     Active Substance: DIAZEPAM
     Indication: MYALGIA
  5. PHOSPHORUS [Suspect]
     Active Substance: PHOSPHORUS
     Indication: PRODUCT USED FOR UNKNOWN INDICATION
     Dosage: UNK
     Route: 065
  6. CODEINE PHOSPHATE [Interacting]
     Active Substance: CODEINE PHOSPHATE
     Indication: ANALGESIC THERAPY
     Dosage: UNK UNK, QD, (15?30MG)
     Route: 048
     Dates: start: 20110615, end: 20110723
  7. AMITRIPTYLINE [Interacting]
     Active Substance: AMITRIPTYLINE
     Indication: NEURALGIA
  8. PROCYCLIDINE HYDROCHLORIDE [Interacting]
     Active Substance: PROCYCLIDINE HYDROCHLORIDE
     Indication: OCULOGYRIC CRISIS
     Dosage: 5 MG, TID
     Route: 048
     Dates: start: 20110503, end: 20110510
  9. OMEPRAZOLE. [Suspect]
     Active Substance: OMEPRAZOLE
     Indication: DYSPEPSIA
     Dosage: 20 MG, QD
     Route: 048
     Dates: start: 20110525
  10. PROCYCLIDINE [Suspect]
     Active Substance: PROCYCLIDINE
     Indication: OCULOGYRIC CRISIS
     Dosage: UNK
     Route: 048
     Dates: start: 1995, end: 1996
  11. TRAMADOL HYDROCHLORIDE. [Interacting]
     Active Substance: TRAMADOL HYDROCHLORIDE
     Indication: ANALGESIC THERAPY
     Dosage: 5 MG, QD
     Route: 044
     Dates: start: 1995, end: 1995
  12. CLONAZEPAM. [Interacting]
     Active Substance: CLONAZEPAM
     Indication: SEDATION
     Dosage: UNK, (UNSURE, THERAPY END FLAG: DRUG NO LONGER ADMINISTERED )
     Route: 048
     Dates: start: 20110224, end: 20110410
  13. PROCYCLIDINE HYDROCHLORIDE [Interacting]
     Active Substance: PROCYCLIDINE HYDROCHLORIDE
     Indication: EXTRAPYRAMIDAL DISORDER
     Dosage: 5 MG, QD
     Route: 048
     Dates: start: 1995, end: 1996
  14. PROCYCLIDINE HYDROCHLORIDE [Interacting]
     Active Substance: PROCYCLIDINE HYDROCHLORIDE
     Dosage: 20 MG
     Route: 048
     Dates: start: 20110324, end: 20110506
  15. CODEINE PHOSPHATE [Interacting]
     Active Substance: CODEINE PHOSPHATE
     Dosage: UNK
     Route: 048
     Dates: start: 2002, end: 2002
  16. TRAMADOL HYDROCHLORIDE. [Interacting]
     Active Substance: TRAMADOL HYDROCHLORIDE
     Indication: NECK PAIN
     Dosage: UNK UNK, QD (4 CYCLICAL, QD (50?100 MG QD))
     Route: 048
     Dates: start: 20081201, end: 20101210
  17. MIRTAZAPINE. [Interacting]
     Active Substance: MIRTAZAPINE
     Indication: DEPRESSION
     Dosage: 30 MG, QD, (DOSAGE FORM: UNSPECIFIED, 30MG IN THE DAY AND 15MG AT NIGHT)
     Route: 048
     Dates: start: 20100923, end: 20101108
  18. MIRTAZAPINE. [Interacting]
     Active Substance: MIRTAZAPINE
     Indication: DEPRESSION
     Dosage: 30 MG, QD
     Route: 048
     Dates: start: 20101007, end: 20101012
  19. SEROXAT [Suspect]
     Active Substance: PAROXETINE HYDROCHLORIDE
     Indication: DEPRESSION
     Dosage: 20 MG, TID, (60 MG, QD, 20 MG THREE TIMES A DAY)
     Route: 048
     Dates: start: 19990801, end: 201105
  20. SEROXAT [Interacting]
     Active Substance: PAROXETINE HYDROCHLORIDE
     Indication: POST-TRAUMATIC STRESS DISORDER
     Dosage: 40 MG, QD
     Route: 048
     Dates: start: 201105, end: 20110706
  21. LORAZEPAM. [Interacting]
     Active Substance: LORAZEPAM
     Indication: SEDATION
     Dosage: 1 MG, QID (4 MG, QD )
     Route: 048
     Dates: start: 20110523, end: 20110627
  22. QUETIAPINE FUMARATE. [Interacting]
     Active Substance: QUETIAPINE FUMARATE
     Indication: PSYCHOTIC DISORDER
     Dosage: 300 MG
     Route: 048
     Dates: start: 20110224, end: 20110506
  23. DIAZEPAM. [Interacting]
     Active Substance: DIAZEPAM
     Indication: MUSCLE SPASMS
     Dosage: 20 MG, QD, 20 MG, QD 5 MILLIGRAM, QID (5 MG QDS AND NOW ON 2?2?4 MG)
     Route: 065
     Dates: start: 20110725
  24. CODEINE PHOSPHATE [Interacting]
     Active Substance: CODEINE PHOSPHATE
     Indication: SEROTONIN SYNDROME
     Dosage: UNK
     Route: 048
     Dates: start: 2008, end: 2008
  25. DOMPERIDONE [Interacting]
     Active Substance: DOMPERIDONE
     Dosage: UNK
     Route: 048
  26. TRAMADOL HYDROCHLORIDE. [Interacting]
     Active Substance: TRAMADOL HYDROCHLORIDE
     Indication: BACK PAIN
     Dosage: UNK, QD
     Route: 048
     Dates: start: 20080722
  27. DOMPERIDONE [Interacting]
     Active Substance: DOMPERIDONE
     Indication: PRODUCT USED FOR UNKNOWN INDICATION
     Dosage: UNK
     Route: 065
  28. AMITRIPTYLINE [Interacting]
     Active Substance: AMITRIPTYLINE
     Indication: MUSCLE SPASMS
     Dosage: 25 MG, QD, (25MG AT NIGHT)
     Route: 065
     Dates: start: 20110810

REACTIONS (89)
  - Delirium [Unknown]
  - Toxicity to various agents [Unknown]
  - Mood swings [Unknown]
  - Gastric pH decreased [Unknown]
  - Visual impairment [Unknown]
  - Depersonalisation/derealisation disorder [Unknown]
  - Nightmare [Unknown]
  - Seizure [Unknown]
  - Incontinence [Not Recovered/Not Resolved]
  - Agitation [Unknown]
  - Balance disorder [Unknown]
  - Vision blurred [Unknown]
  - Hypoaesthesia [Unknown]
  - Fatigue [Unknown]
  - Limb injury [Unknown]
  - Paralysis [Unknown]
  - Menstrual disorder [Unknown]
  - Dissociation [Not Recovered/Not Resolved]
  - Drug interaction [Unknown]
  - Blood sodium decreased [Unknown]
  - Feeling jittery [Unknown]
  - Muscle spasms [Not Recovered/Not Resolved]
  - Hypoaesthesia oral [Unknown]
  - Neuroleptic malignant syndrome [Unknown]
  - Schizophrenia [Unknown]
  - Disturbance in attention [Unknown]
  - Depression [Unknown]
  - Arthralgia [Unknown]
  - Contusion [Unknown]
  - Urinary retention [Unknown]
  - Diarrhoea [Unknown]
  - Dyspnoea [Unknown]
  - Exposure during pregnancy [Unknown]
  - Confusional state [Unknown]
  - Asthenia [Unknown]
  - Tinnitus [Unknown]
  - Feeling of body temperature change [Unknown]
  - Speech disorder [Unknown]
  - Contusion [Unknown]
  - Suicidal ideation [Not Recovered/Not Resolved]
  - Psychotic disorder [Recovered/Resolved]
  - Mania [Unknown]
  - Cyanosis [Unknown]
  - Skin discolouration [Not Recovered/Not Resolved]
  - Feeling of despair [Unknown]
  - Sleep disorder [Unknown]
  - Dystonia [Unknown]
  - Anxiety [Unknown]
  - Drug withdrawal syndrome [Unknown]
  - Dizziness [Unknown]
  - Swelling face [Unknown]
  - Muscle disorder [Unknown]
  - Hypoaesthesia [Not Recovered/Not Resolved]
  - Swollen tongue [Unknown]
  - Pruritus [Unknown]
  - Hyperhidrosis [Unknown]
  - Pallor [Unknown]
  - Hallucinations, mixed [Unknown]
  - Premature labour [Unknown]
  - Pyrexia [Unknown]
  - Vomiting [Unknown]
  - Dyskinesia [Unknown]
  - Headache [Unknown]
  - Sensory loss [Unknown]
  - Cogwheel rigidity [Unknown]
  - Tachycardia [Unknown]
  - Restlessness [Unknown]
  - Muscle rigidity [Unknown]
  - Illness [Unknown]
  - Therapeutic product ineffective [Unknown]
  - Aphasia [Recovered/Resolved]
  - Heart rate increased [Unknown]
  - Tremor [Not Recovered/Not Resolved]
  - Parosmia [Unknown]
  - Gait disturbance [Unknown]
  - Decreased appetite [Unknown]
  - Emotional disorder [Unknown]
  - Muscle spasms [Unknown]
  - Serotonin syndrome [Not Recovered/Not Resolved]
  - H1N1 influenza [Unknown]
  - Paraesthesia [Unknown]
  - Derealisation [Not Recovered/Not Resolved]
  - Disorientation [Not Recovered/Not Resolved]
  - Drooling [Unknown]
  - Mydriasis [Unknown]
  - Musculoskeletal stiffness [Unknown]
  - Eye pain [Unknown]
  - Somnolence [Unknown]
  - Restless legs syndrome [Not Recovered/Not Resolved]

NARRATIVE: CASE EVENT DATE: 2003
